FAERS Safety Report 9549723 (Version 2)
Quarter: 2013Q3

REPORT INFORMATION
  Report Type: Spontaneous
  Country: None (occurrence: US)
  Receive Date: 20130924
  Receipt Date: 20130924
  Transmission Date: 20140515
  Serious: No
  Sender: FDA-Public Use
  Company Number: US-ALLERGAN-1312287US

PATIENT
  Age: 78 Year
  Sex: Female

DRUGS (2)
  1. LUMIGAN 0.01% [Suspect]
     Indication: PRODUCT USED FOR UNKNOWN INDICATION
     Dosage: 2 GTT, QOD
     Route: 047
  2. LUMIGAN 0.01% [Suspect]
     Dosage: 2 GTT, QHS
     Route: 047
     Dates: start: 20130723, end: 20130806

REACTIONS (3)
  - Eye haemorrhage [Recovered/Resolved]
  - Inappropriate schedule of drug administration [Unknown]
  - Instillation site pain [Recovered/Resolved]
